FAERS Safety Report 17648735 (Version 1)
Quarter: 2020Q2

REPORT INFORMATION
  Report Type: Spontaneous
  Country: DE (occurrence: DE)
  Receive Date: 20200408
  Receipt Date: 20200408
  Transmission Date: 20200713
  Serious: Yes (Hospitalization)
  Sender: FDA-Public Use
  Company Number: DE-SA-2020SA089557

PATIENT
  Age: 78 Year
  Sex: Male

DRUGS (11)
  1. EDOXABAN [Concomitant]
     Active Substance: EDOXABAN TOSYLATE
     Dosage: 60 MG, QD (1-0-0-0)
  2. LEVOTHYROXINE SODIUM. [Concomitant]
     Active Substance: LEVOTHYROXINE SODIUM
     Dosage: 50 ?G, 1-0-0-0
  3. PARACETAMOL [Concomitant]
     Active Substance: ACETAMINOPHEN
     Dosage: 500 MG, PRN
  4. IDEOS [Concomitant]
     Active Substance: CALCIUM CARBONATE\CHOLECALCIFEROL
     Dosage: 500|400 MG/IE, 1-0-0-0
  5. METAMIZOL [Concomitant]
     Active Substance: METAMIZOLE SODIUM
     Dosage: 500 MG (IF NECESSARY)
  6. DRONEDARONE [Suspect]
     Active Substance: DRONEDARONE
     Dosage: 400 MG
  7. CANDESARTAN. [Concomitant]
     Active Substance: CANDESARTAN
     Dosage: 8 MG ( 0-0-2-0)
  8. OMEPRAZOL [OMEPRAZOLE] [Concomitant]
     Active Substance: OMEPRAZOLE
     Dosage: 20 MG, QD (1-0-0-0)
  9. VERAPAMIL [Concomitant]
     Active Substance: VERAPAMIL HYDROCHLORIDE
     Dosage: 80 MG, 1-0.5-0.5-0
  10. PASPERTIN [METOCLOPRAMIDE HYDROCHLORIDE] [Concomitant]
     Active Substance: METOCLOPRAMIDE HYDROCHLORIDE
     Dosage: UNK MG, PRN
  11. VIGANTOL [COLECALCIFEROL] [Concomitant]
     Active Substance: CHOLECALCIFEROL
     Dosage: 1000 IE, 0-1-0-0

REACTIONS (1)
  - Abdominal pain lower [Unknown]

NARRATIVE: CASE EVENT DATE: 20191202
